FAERS Safety Report 8078280-3 (Version None)
Quarter: 2012Q1

REPORT INFORMATION
  Report Type: 
  Country: None (occurrence: None)
  Receive Date: 20120123
  Receipt Date: 20120109
  Transmission Date: 20120608
  Serious: Yes (Death, Hospitalization, Other)
  Sender: FDA-Public Use
  Company Number: 2012MA000439

PATIENT
  Sex: Female
  Weight: 45.3597 kg

DRUGS (27)
  1. CARDIZEM [Concomitant]
  2. LITORIL [Concomitant]
  3. ASPIRIN [Concomitant]
  4. LEVOTHYROXINE SODIUM [Concomitant]
  5. PRILOSEC [Concomitant]
  6. COZAAR [Concomitant]
  7. TIMOPTIC [Concomitant]
  8. DIGOXIN [Suspect]
     Indication: PRODUCT USED FOR UNKNOWN INDICATION
     Dosage: 0.25 MG;QD;PO
     Route: 048
     Dates: start: 19970808, end: 20080301
  9. LASIX [Concomitant]
  10. CALCIUM [Concomitant]
  11. LORAZEPAM [Concomitant]
  12. PLAVIX [Concomitant]
  13. SYNTHROID [Concomitant]
  14. VICODIN [Concomitant]
  15. ALTACE [Concomitant]
  16. DYAZIDE [Concomitant]
  17. IRON [Concomitant]
  18. NITROGLYCERIN [Concomitant]
  19. PREVACID [Concomitant]
  20. SERTRALINE HYDROCHLORIDE [Concomitant]
  21. ISOSORBIDE DINITRATE [Concomitant]
  22. TIAZAC [Concomitant]
  23. VITAMIN E [Concomitant]
  24. DAYPRO [Concomitant]
  25. IMDUR [Concomitant]
  26. LIPITOR [Concomitant]
  27. M.V.I. [Concomitant]

REACTIONS (56)
  - COLD SWEAT [None]
  - SCAN MYOCARDIAL PERFUSION ABNORMAL [None]
  - URINARY INCONTINENCE [None]
  - CHEST DISCOMFORT [None]
  - CARDIAC FAILURE CONGESTIVE [None]
  - GASTROINTESTINAL HAEMORRHAGE [None]
  - DECREASED APPETITE [None]
  - MALAISE [None]
  - CORONARY ARTERY DISEASE [None]
  - MELAENA [None]
  - HIATUS HERNIA [None]
  - URINARY TRACT INFECTION [None]
  - MUSCULAR WEAKNESS [None]
  - TOXICITY TO VARIOUS AGENTS [None]
  - CAROTID ARTERY STENOSIS [None]
  - MITRAL VALVE INCOMPETENCE [None]
  - CARDIAC PACEMAKER INSERTION [None]
  - INSOMNIA [None]
  - ELECTROCARDIOGRAM QRS COMPLEX PROLONGED [None]
  - DYSPNOEA [None]
  - MITRAL VALVE REPAIR [None]
  - NAUSEA [None]
  - BLOOD PRESSURE ORTHOSTATIC ABNORMAL [None]
  - CORONARY ARTERY OCCLUSION [None]
  - OEDEMA PERIPHERAL [None]
  - LEFT ATRIAL DILATATION [None]
  - AORTIC STENOSIS [None]
  - HYPERLIPIDAEMIA [None]
  - SYNCOPE [None]
  - HYPOTHYROIDISM [None]
  - DILATATION VENTRICULAR [None]
  - INSPIRATORY CAPACITY DECREASED [None]
  - ATRIOVENTRICULAR BLOCK FIRST DEGREE [None]
  - CHEST PAIN [None]
  - ANGINA PECTORIS [None]
  - HYPERTENSION [None]
  - LOSS OF CONSCIOUSNESS [None]
  - CARDIAC MURMUR [None]
  - AORTIC ARTERIOSCLEROSIS [None]
  - OESOPHAGITIS [None]
  - EROSIVE OESOPHAGITIS [None]
  - ANAEMIA [None]
  - ASTHENIA [None]
  - IRON DEFICIENCY ANAEMIA [None]
  - SINUS TACHYCARDIA [None]
  - DYSPNOEA EXERTIONAL [None]
  - FATIGUE [None]
  - FEELING ABNORMAL [None]
  - AORTIC VALVE INCOMPETENCE [None]
  - TRICUSPID VALVE INCOMPETENCE [None]
  - SUPRAVENTRICULAR TACHYCARDIA [None]
  - HYPERHIDROSIS [None]
  - BUNDLE BRANCH BLOCK RIGHT [None]
  - OCCULT BLOOD POSITIVE [None]
  - LOBAR PNEUMONIA [None]
  - PALPITATIONS [None]
